FAERS Safety Report 17260173 (Version 1)
Quarter: 2020Q1

REPORT INFORMATION
  Report Type: Spontaneous
  Country: IT (occurrence: IT)
  Receive Date: 20200111
  Receipt Date: 20200111
  Transmission Date: 20200409
  Serious: Yes (Hospitalization)
  Sender: FDA-Public Use
  Company Number: IT-TEVA-2020-IT-1166083

PATIENT
  Age: 87 Year
  Sex: Male

DRUGS (10)
  1. XATRAL [Concomitant]
     Active Substance: ALFUZOSIN
     Route: 048
  2. RETACRIT 4 000 IU/0.4 ML SOLUTION FOR INJECTION IN PRE-FILLED SYRINGE [Concomitant]
     Route: 058
  3. COUMADIN [Suspect]
     Active Substance: WARFARIN SODIUM
     Indication: ATRIAL FIBRILLATION
     Dosage: 1 DOSAGE FORM
     Route: 048
     Dates: start: 20190101, end: 20190630
  4. PANTORC [Concomitant]
     Active Substance: PANTOPRAZOLE SODIUM
     Route: 048
  5. CLOPIDOGREL [Suspect]
     Active Substance: CLOPIDOGREL BISULFATE
     Indication: ISCHAEMIC HEART DISEASE PROPHYLAXIS
     Dosage: 75 MILLIGRAM
     Route: 048
     Dates: start: 20190101, end: 20190630
  6. TAREG [Concomitant]
     Active Substance: VALSARTAN
     Route: 048
  7. LASIX [Concomitant]
     Active Substance: FUROSEMIDE
     Route: 048
  8. ZYLORIC [Concomitant]
     Active Substance: ALLOPURINOL
     Route: 048
  9. TORVAST 20 MG COMPRESSE RIVESTITE CON FILM [Concomitant]
     Route: 048
  10. ACETYLSALICYLIC ACID [Suspect]
     Active Substance: ASPIRIN
     Indication: THROMBOSIS PROPHYLAXIS
     Dosage: 100 MILLIGRAM
     Route: 048
     Dates: start: 20190101, end: 20190630

REACTIONS (2)
  - Haematoma muscle [Unknown]
  - Anaemia [Unknown]

NARRATIVE: CASE EVENT DATE: 20190630
